FAERS Safety Report 19820290 (Version 1)
Quarter: 2021Q3

REPORT INFORMATION
  Report Type: Spontaneous
  Country: US (occurrence: US)
  Receive Date: 20210910
  Receipt Date: 20210910
  Transmission Date: 20211014
  Serious: Yes (Hospitalization)
  Sender: FDA-Public Use
  Company Number: None

PATIENT
  Age: 44 Year
  Sex: Female
  Weight: 88 kg

DRUGS (1)
  1. REGEN?COV [Suspect]
     Active Substance: CASIRIVIMAB\IMDEVIMAB
     Indication: COVID-19
     Route: 058
     Dates: start: 20210908, end: 20210908

REACTIONS (12)
  - Pyrexia [None]
  - Cough [None]
  - Dyspnoea exertional [None]
  - Chest discomfort [None]
  - Back pain [None]
  - Dehydration [None]
  - Acute kidney injury [None]
  - Dyspnoea [None]
  - Diarrhoea [None]
  - COVID-19 pneumonia [None]
  - Pneumonia bacterial [None]
  - Urinary tract infection [None]

NARRATIVE: CASE EVENT DATE: 20210909
